FAERS Safety Report 18108917 (Version 2)
Quarter: 2020Q3

REPORT INFORMATION
  Report Type: Spontaneous
  Country: US (occurrence: US)
  Receive Date: 20200804
  Receipt Date: 20200901
  Transmission Date: 20201103
  Serious: No
  Sender: FDA-Public Use
  Company Number: US-PFIZER INC-2020286118

PATIENT
  Age: 47 Year
  Sex: Female

DRUGS (3)
  1. RELPAX [Suspect]
     Active Substance: ELETRIPTAN HYDROBROMIDE
     Dosage: 1 TABLET ONCE A DAY AS NEEDED
  2. RELPAX [Suspect]
     Active Substance: ELETRIPTAN HYDROBROMIDE
     Indication: MIGRAINE
     Dosage: UNK, AS NEEDED [1 TABLET TAKEN AND ANOTHER AFTER 4 HOURS AS NEEDED]
     Route: 048
  3. ZOMIG [Concomitant]
     Active Substance: ZOLMITRIPTAN
     Indication: MIGRAINE

REACTIONS (10)
  - Feeling abnormal [Recovered/Resolved]
  - Premenstrual headache [Unknown]
  - Suspected counterfeit product [Unknown]
  - Poor quality product administered [Unknown]
  - Somnolence [Unknown]
  - Musculoskeletal stiffness [Unknown]
  - Product packaging issue [Unknown]
  - Therapeutic product effect delayed [Recovered/Resolved]
  - Feeling drunk [Unknown]
  - Agitation [Unknown]
